FAERS Safety Report 8761034 (Version 4)
Quarter: 2012Q4

REPORT INFORMATION
  Report Type: 
  Country: US (occurrence: US)
  Receive Date: 20120830
  Receipt Date: 20121102
  Transmission Date: 20130627
  Serious: Yes (Hospitalization, Disabling, Other)
  Sender: FDA-Public Use
  Company Number: US-009507513-1206USA00014

PATIENT

DRUGS (3)
  1. FOSAMAX [Suspect]
     Indication: OSTEOPOROSIS
     Dosage: 70 mg, qw
     Route: 048
     Dates: end: 2011
  2. FOSAMAX [Suspect]
     Indication: OSTEOPOROSIS
     Route: 048
  3. CALCIUM (UNSPECIFIED) (+) VITAMIN D (UNSPECIFIED) [Concomitant]
     Indication: OSTEOPOROSIS

REACTIONS (27)
  - Femur fracture [Unknown]
  - Cholecystectomy [Unknown]
  - Hernia repair [Unknown]
  - Road traffic accident [Unknown]
  - Pelvic fracture [Unknown]
  - Head injury [Unknown]
  - Contusion [Recovering/Resolving]
  - Syncope [Recovered/Resolved]
  - Low turnover osteopathy [Unknown]
  - Hysterectomy [Unknown]
  - Ecchymosis [Unknown]
  - Abdominal wall haemorrhage [Unknown]
  - Diabetes mellitus [Unknown]
  - Hyperlipidaemia [Unknown]
  - Osteoarthritis [Unknown]
  - Sinusitis [Unknown]
  - Diverticulum intestinal [Unknown]
  - Haemorrhoids [Unknown]
  - Hypertension [Unknown]
  - Osteoarthritis [Unknown]
  - Blood cholesterol increased [Unknown]
  - Back pain [Unknown]
  - Pain in extremity [Unknown]
  - Contusion [Recovering/Resolving]
  - Intervertebral disc degeneration [Unknown]
  - Bursitis [Unknown]
  - Contusion [Unknown]
